FAERS Safety Report 17082106 (Version 1)
Quarter: 2019Q4

REPORT INFORMATION
  Report Type: Spontaneous
  Country: US (occurrence: US)
  Receive Date: 20191127
  Receipt Date: 20191127
  Transmission Date: 20200122
  Serious: No
  Sender: FDA-Public Use
  Company Number: US-PFIZER INC-2019510012

PATIENT
  Sex: Female

DRUGS (1)
  1. FLUCONAZOLE. [Suspect]
     Active Substance: FLUCONAZOLE
     Dosage: 60 MG, UNK (A 30 DAY SUPPLY)

REACTIONS (3)
  - Arthritis [Unknown]
  - Alopecia [Unknown]
  - Drug ineffective [Unknown]
